FAERS Safety Report 21480439 (Version 5)
Quarter: 2022Q4

REPORT INFORMATION
  Report Type: Report from Study
  Country: JP (occurrence: JP)
  Receive Date: 20221019
  Receipt Date: 20221117
  Transmission Date: 20230113
  Serious: Yes (Death)
  Sender: FDA-Public Use
  Company Number: JP-PFIZER INC-PV202200084367

PATIENT
  Age: 88 Year
  Sex: Female

DRUGS (14)
  1. NIRMATRELVIR\RITONAVIR [Suspect]
     Active Substance: NIRMATRELVIR\RITONAVIR
     Indication: COVID-19 treatment
     Dosage: [PF-07321332 300 MG]/[RITONAVIR 100 MG]; 2X/DAY
     Dates: start: 20220830, end: 20220903
  2. AMLODIPINE [Concomitant]
     Active Substance: AMLODIPINE BESYLATE
     Dosage: UNK
     Route: 048
     Dates: end: 20220927
  3. TELMISARTAN [Concomitant]
     Active Substance: TELMISARTAN
     Dosage: UNK
     Route: 048
  4. BISOPROLOL FUMARATE [Concomitant]
     Active Substance: BISOPROLOL FUMARATE
     Dosage: UNK
     Route: 048
  5. REBAMIPIDE [Concomitant]
     Active Substance: REBAMIPIDE
     Indication: Disease complication
     Dosage: UNK
     Route: 048
     Dates: end: 20220927
  6. VITANEURIN [FURSULTIAMINE HYDROCHLORIDE;HYDROXOCOBALAMIN ACETATE;PYRID [Concomitant]
     Indication: Disease complication
     Dosage: UNK
     Route: 048
     Dates: end: 20220927
  7. TOCOPHEROL [Concomitant]
     Active Substance: TOCOPHEROL
     Indication: Disease complication
     Dosage: UNK
     Route: 048
     Dates: end: 20220927
  8. AMLODIPINE BESYLATE\AZILSARTAN [Concomitant]
     Active Substance: AMLODIPINE BESYLATE\AZILSARTAN
     Indication: Disease complication
     Dosage: UNK
     Route: 048
     Dates: end: 20220927
  9. ELDECALCITOL [Concomitant]
     Active Substance: ELDECALCITOL
     Indication: Disease complication
     Dosage: UNK
     Route: 048
     Dates: end: 20220927
  10. MENATETRENONE [Concomitant]
     Active Substance: MENATETRENONE
     Indication: Disease complication
     Dosage: UNK
     Route: 048
     Dates: end: 20220927
  11. ICOSAPENT ETHYL [Concomitant]
     Active Substance: ICOSAPENT ETHYL
     Indication: Disease complication
     Dosage: UNK
     Route: 048
     Dates: end: 20220927
  12. AZOSEMIDE [Concomitant]
     Active Substance: AZOSEMIDE
     Indication: Disease complication
     Dosage: UNK
     Route: 048
     Dates: end: 20220927
  13. MINOCYCLINE [Concomitant]
     Active Substance: MINOCYCLINE HYDROCHLORIDE
     Indication: Disease complication
     Dosage: UNK
     Route: 048
     Dates: end: 20220927
  14. SPIRONOLACTONE [Concomitant]
     Active Substance: SPIRONOLACTONE
     Indication: Disease complication
     Dosage: UNK
     Route: 048
     Dates: end: 20220927

REACTIONS (2)
  - Pneumonia bacterial [Fatal]
  - Cardiac failure chronic [Fatal]

NARRATIVE: CASE EVENT DATE: 20220927
